FAERS Safety Report 5100599-6 (Version None)
Quarter: 2006Q3

REPORT INFORMATION
  Report Type: 
  Country: None (occurrence: None)
  Receive Date: 20060907
  Receipt Date: 20060907
  Transmission Date: 20061208
  Serious: Yes (Hospitalization)
  Sender: FDA-Public Use
  Company Number: None

PATIENT
  Sex: Male
  Weight: 83.7 kg

DRUGS (15)
  1. COUMADIN [Suspect]
     Indication: DEEP VEIN THROMBOSIS
     Dosage: 7.5MG  DAILY  PO
     Route: 048
     Dates: start: 20060816, end: 20060906
  2. PSEUEPHEDRINE [Concomitant]
  3. IBUPROFEN [Concomitant]
  4. TRAZODONE HCL [Concomitant]
  5. LISINOPRIL [Concomitant]
  6. LORATADINE [Concomitant]
  7. SIMVASTATIN [Concomitant]
  8. CITALOPRAM HYDROBROMIDE [Concomitant]
  9. VARDENAFIL HCL [Concomitant]
  10. DIVALPROEX [Concomitant]
  11. TEMAZEPAM [Concomitant]
  12. QUININE SULFATE [Concomitant]
  13. HYDROCODONE BITARTRATE + ACETAMINOPHEN [Concomitant]
  14. ETODOLAC [Concomitant]
  15. FLUNISOLIDE [Concomitant]

REACTIONS (3)
  - DEEP VEIN THROMBOSIS [None]
  - HAEMATOMA [None]
  - INTERNATIONAL NORMALISED RATIO INCREASED [None]
